FAERS Safety Report 20191955 (Version 14)
Quarter: 2022Q2

REPORT INFORMATION
  Report Type: Spontaneous
  Country: CA (occurrence: CA)
  Receive Date: 20211216
  Receipt Date: 20220601
  Transmission Date: 20220721
  Serious: Yes (Hospitalization, Other)
  Sender: FDA-Public Use
  Company Number: CA-CELLTRION INC.-2021CA017213

PATIENT

DRUGS (8)
  1. INFLECTRA [Suspect]
     Active Substance: INFLIXIMAB-DYYB
     Indication: Crohn^s disease
     Dosage: 500 MG, EVERY 8 WEEKS,  0, 2, 6 THEN EVERY 8 WEEKS
     Route: 042
     Dates: start: 20191220
  2. INFLECTRA [Suspect]
     Active Substance: INFLIXIMAB-DYYB
     Dosage: 500 MG, (WEEK 0 IN HOSPITAL START OF REINDUCTION)
     Route: 042
     Dates: start: 20200225
  3. INFLECTRA [Suspect]
     Active Substance: INFLIXIMAB-DYYB
     Dosage: 900 MG, EVERY 4 WEEKS, 0, 2, 6 THEN EVERY 4 WEEKS
     Route: 042
     Dates: start: 20200512, end: 20210505
  4. INFLECTRA [Suspect]
     Active Substance: INFLIXIMAB-DYYB
     Dosage: 900 MG, RELOAD AT 0,2,6 WEEKS, THEN Q4 WEEKS
     Route: 042
     Dates: start: 20211106
  5. INFLECTRA [Suspect]
     Active Substance: INFLIXIMAB-DYYB
     Dosage: 900 MG, RELOAD AT 0,2,6 WEEKS, THEN Q4 WEEKS
     Route: 042
     Dates: start: 20211224
  6. HYDROMORPHONE HYDROCHLORIDE [Concomitant]
     Active Substance: HYDROMORPHONE HYDROCHLORIDE
     Indication: Analgesic therapy
     Dosage: 4 MG
     Dates: start: 20200211
  7. PANTOPRAZOLE SODIUM [Concomitant]
     Active Substance: PANTOPRAZOLE SODIUM
     Dosage: UNK
  8. PREDNISONE [Concomitant]
     Active Substance: PREDNISONE
     Dosage: UNK

REACTIONS (40)
  - Influenza [Unknown]
  - COVID-19 [Unknown]
  - Pneumonia [Unknown]
  - Pulmonary congestion [Unknown]
  - Neuropathy peripheral [Unknown]
  - Osteomyelitis [Unknown]
  - Abdominal strangulated hernia [Unknown]
  - Illness [Not Recovered/Not Resolved]
  - Nasopharyngitis [Not Recovered/Not Resolved]
  - Dyspnoea [Not Recovered/Not Resolved]
  - Dehydration [Unknown]
  - Diarrhoea [Unknown]
  - Nausea [Unknown]
  - Labyrinthitis [Unknown]
  - Cough [Unknown]
  - Clostridium test positive [Unknown]
  - Bronchitis [Unknown]
  - Chest pain [Unknown]
  - Blood glucose abnormal [Unknown]
  - Feeling abnormal [Unknown]
  - Pyrexia [Unknown]
  - Blood glucose fluctuation [Unknown]
  - Ear pain [Not Recovered/Not Resolved]
  - Oropharyngeal pain [Not Recovered/Not Resolved]
  - Myalgia [Unknown]
  - Peripheral swelling [Unknown]
  - Sinusitis [Unknown]
  - Ear infection [Unknown]
  - Infection [Unknown]
  - Feeling abnormal [Unknown]
  - Fatigue [Unknown]
  - Malaise [Not Recovered/Not Resolved]
  - Stoma complication [Recovering/Resolving]
  - Stoma site pain [Recovering/Resolving]
  - Off label use [Unknown]
  - Product dose omission issue [Unknown]
  - Pain [Not Recovered/Not Resolved]
  - Constipation [Not Recovered/Not Resolved]
  - Prolapse [Unknown]
  - Abscess [Unknown]

NARRATIVE: CASE EVENT DATE: 20200512
